FAERS Safety Report 4312136-4 (Version None)
Quarter: 2004Q1

REPORT INFORMATION
  Report Type: 
  Country: None (occurrence: None)
  Receive Date: 20040305
  Receipt Date: 20011207
  Transmission Date: 20041129
  Serious: Yes (Other)
  Sender: FDA-Public Use
  Company Number: US-BRISTOL-MYERS SQUIBB COMPANY-11618535

PATIENT
  Age: 34 Year
  Sex: Male

DRUGS (5)
  1. NEORAL [Suspect]
     Route: 048
     Dates: start: 20011002
  2. CELLCEPT [Suspect]
     Dates: start: 20011001
  3. PREDNISONE [Suspect]
     Dates: start: 20011003
  4. BACTRIM [Concomitant]
     Dates: start: 20011003
  5. MOPRAL [Concomitant]
     Dates: start: 20011003

REACTIONS (2)
  - BLOOD CREATININE INCREASED [None]
  - DEHYDRATION [None]
